FAERS Safety Report 9726880 (Version 1)
Quarter: 2013Q4

REPORT INFORMATION
  Report Type: Spontaneous
  Country: US (occurrence: US)
  Receive Date: 20131203
  Receipt Date: 20131203
  Transmission Date: 20140711
  Serious: No
  Sender: FDA-Public Use
  Company Number: US-NOVEN-13US006748

PATIENT
  Age: 44 Year
  Sex: Female

DRUGS (15)
  1. FENTANYL [Suspect]
     Indication: POSTOPERATIVE ANALGESIA
     Dosage: 25 UG/HR, UNK
     Route: 062
     Dates: start: 20130425
  2. NEXIUM                             /01479302/ [Concomitant]
     Dosage: 40 MG, QD
     Route: 048
  3. BUPROPION [Concomitant]
     Dosage: 150 MG, QD
     Route: 048
  4. LAMOTRIGINE [Concomitant]
     Dosage: 100 MG, QD
     Route: 048
  5. CYMBALTA [Concomitant]
     Dosage: 60 MG, QD
     Route: 048
  6. MONTELUKAST [Concomitant]
     Dosage: 10 MG, QD
     Route: 048
  7. FEXOFENADINE [Concomitant]
     Dosage: 180 MG, QD
     Route: 048
  8. ADDERALL [Concomitant]
     Dosage: 20 MG, QD
     Route: 048
  9. DOCUSATE SODIUM [Concomitant]
     Dosage: 200 MG, QD
     Route: 048
  10. EX-LAX                             /00142201/ [Concomitant]
     Dosage: UNK
  11. MIRALAX                            /00754501/ [Concomitant]
     Dosage: UNK
  12. ZANTAC [Concomitant]
     Dosage: 300 MG, UNK
     Route: 048
  13. PREDNISONE [Concomitant]
     Dosage: 60 MG, UNK
     Route: 048
  14. EPIPEN [Concomitant]
     Dosage: UNK
     Route: 030
  15. XOLAIR [Concomitant]

REACTIONS (4)
  - Chest discomfort [Not Recovered/Not Resolved]
  - Swelling [Not Recovered/Not Resolved]
  - Pruritus [Not Recovered/Not Resolved]
  - Off label use [Not Recovered/Not Resolved]
